FAERS Safety Report 7468298-3 (Version None)
Quarter: 2011Q2

REPORT INFORMATION
  Report Type: 
  Country: None (occurrence: None)
  Receive Date: 20110509
  Receipt Date: 20110503
  Transmission Date: 20111010
  Serious: Yes (Other)
  Sender: FDA-Public Use
  Company Number: US-AMGEN-USASP2011022957

PATIENT
  Sex: Female

DRUGS (3)
  1. HYDRALAZINE HCL [Concomitant]
  2. EPOGEN [Suspect]
     Indication: RENAL FAILURE CHRONIC
     Dates: start: 20030101
  3. METOPROLOL TARTRATE [Concomitant]

REACTIONS (4)
  - RENAL FAILURE CHRONIC [None]
  - CERVIX CARCINOMA [None]
  - FATIGUE [None]
  - HAEMOGLOBIN DECREASED [None]
